FAERS Safety Report 11262056 (Version 1)
Quarter: 2015Q3

REPORT INFORMATION
  Report Type: Report from Study
  Country: US (occurrence: US)
  Receive Date: 20150710
  Receipt Date: 20150710
  Transmission Date: 20151125
  Serious: Yes (Hospitalization)
  Sender: FDA-Public Use
  Company Number: US-ASTRAZENECA-2015SE65245

PATIENT
  Age: 25519 Day
  Sex: Female
  Weight: 92.9 kg

DRUGS (9)
  1. AZD2281 [Suspect]
     Active Substance: OLAPARIB
     Indication: OVARIAN CANCER
     Dosage: 300 MG TWO TIMES A DAY  X 28 DAYS CYCLE
     Route: 048
     Dates: start: 20131230, end: 20150624
  2. ATACAND [Concomitant]
     Active Substance: CANDESARTAN CILEXETIL
  3. NEXIUM [Concomitant]
     Active Substance: ESOMEPRAZOLE MAGNESIUM
  4. WARFARIN [Concomitant]
     Active Substance: WARFARIN
  5. CARBOPLATIN. [Suspect]
     Active Substance: CARBOPLATIN
     Indication: OVARIAN CANCER
     Dosage: AUC 4 IV Q 21 DAYS
     Route: 042
     Dates: start: 20130716, end: 20131209
  6. GABAPENTIN. [Concomitant]
     Active Substance: GABAPENTIN
  7. AZD2281 [Suspect]
     Active Substance: OLAPARIB
     Indication: OVARIAN CANCER
     Dosage: 200 MG TWO TIMES A DAY D1-7 EVERY 21 DAYS
     Route: 048
  8. LORAZEPAM. [Concomitant]
     Active Substance: LORAZEPAM
  9. METOPROLOL [Concomitant]
     Active Substance: METOPROLOL

REACTIONS (4)
  - Urosepsis [Unknown]
  - Nephrolithiasis [Unknown]
  - Flank pain [Unknown]
  - Hydronephrosis [Unknown]

NARRATIVE: CASE EVENT DATE: 20150624
